FAERS Safety Report 24944211 (Version 1)
Quarter: 2025Q1

REPORT INFORMATION
  Report Type: Spontaneous
  Country: CN (occurrence: CN)
  Receive Date: 20250207
  Receipt Date: 20250207
  Transmission Date: 20250409
  Serious: Yes (Death)
  Sender: ABBVIE
  Company Number: CN-PFIZER INC-PV202500010747

PATIENT
  Age: 79 Year
  Sex: Male

DRUGS (1)
  1. AVIBACTAM SODIUM [Suspect]
     Active Substance: AVIBACTAM SODIUM
     Indication: Enterobacter infection
     Route: 042
     Dates: start: 20250118

REACTIONS (1)
  - Death [Fatal]

NARRATIVE: CASE EVENT DATE: 20250130
